FAERS Safety Report 9657881 (Version 3)
Quarter: 2014Q3

REPORT INFORMATION
  Report Type: Spontaneous
  Country: US (occurrence: US)
  Receive Date: 20131030
  Receipt Date: 20140711
  Transmission Date: 20150326
  Serious: Yes (Hospitalization, Other)
  Sender: FDA-Public Use
  Company Number: US-009507513-1310USA010144

PATIENT
  Sex: Female
  Weight: 72.56 kg

DRUGS (2)
  1. NUVARING [Suspect]
     Active Substance: ETHINYL ESTRADIOL\ETONOGESTREL
     Dosage: UNK
     Dates: end: 200807
  2. NUVARING [Suspect]
     Active Substance: ETHINYL ESTRADIOL\ETONOGESTREL
     Indication: CONTRACEPTION
     Dosage: UNK
     Route: 067
     Dates: start: 20050809, end: 20051222

REACTIONS (11)
  - Chest pain [Unknown]
  - Maternal exposure before pregnancy [Recovered/Resolved]
  - Herpes zoster [Unknown]
  - Lung infiltration [Unknown]
  - Pain in extremity [Recovering/Resolving]
  - Ovarian cyst ruptured [Unknown]
  - Dysfunctional uterine bleeding [Unknown]
  - Caesarean section [Unknown]
  - Pleural effusion [Unknown]
  - Pulmonary embolism [Recovering/Resolving]
  - Cardiac murmur [Unknown]

NARRATIVE: CASE EVENT DATE: 200511
